FAERS Safety Report 10579463 (Version 1)
Quarter: 2014Q4

REPORT INFORMATION
  Report Type: Spontaneous
  Country: US (occurrence: US)
  Receive Date: 20141112
  Receipt Date: 20141112
  Transmission Date: 20150529
  Serious: No
  Sender: FDA-Public Use
  Company Number: US-EISAI MEDICAL RESEARCH-EC-2014-001257

PATIENT
  Age: 12 Year
  Sex: Female

DRUGS (7)
  1. LAMICTAL [Concomitant]
     Active Substance: LAMOTRIGINE
     Dosage: UNKNOWN
     Route: 048
  2. LAMICTAL [Concomitant]
     Active Substance: LAMOTRIGINE
     Dosage: TAPERING OFF
     Route: 048
  3. FYCOMPA [Suspect]
     Active Substance: PERAMPANEL
     Route: 048
     Dates: start: 201410, end: 201410
  4. FYCOMPA [Suspect]
     Active Substance: PERAMPANEL
     Route: 048
     Dates: start: 201410
  5. VIMPAT [Concomitant]
     Active Substance: LACOSAMIDE
  6. FYCOMPA [Suspect]
     Active Substance: PERAMPANEL
     Indication: EPILEPSY
     Route: 048
     Dates: start: 201410, end: 201410
  7. ZONEGRAN [Concomitant]
     Active Substance: ZONISAMIDE
     Route: 048

REACTIONS (16)
  - Weight decreased [Unknown]
  - Feeling abnormal [Unknown]
  - Vomiting [Unknown]
  - Fatigue [Unknown]
  - Hallucination [Unknown]
  - Somnolence [Unknown]
  - Memory impairment [Unknown]
  - Ataxia [Unknown]
  - Headache [Unknown]
  - Nausea [Unknown]
  - Vertigo [Unknown]
  - Musculoskeletal pain [Unknown]
  - Diplopia [Recovering/Resolving]
  - Constipation [Unknown]
  - Hypersomnia [Unknown]
  - Fall [Unknown]

NARRATIVE: CASE EVENT DATE: 201410
